FAERS Safety Report 12420943 (Version 1)
Quarter: 2016Q2

REPORT INFORMATION
  Report Type: Report from Study
  Country: US (occurrence: US)
  Receive Date: 20160531
  Receipt Date: 20160531
  Transmission Date: 20160815
  Serious: Yes (Hospitalization)
  Sender: FDA-Public Use
  Company Number: US-JNJFOC-20160219610

PATIENT
  Age: 79 Year
  Sex: Male
  Weight: 53 kg

DRUGS (13)
  1. MEGACE [Concomitant]
     Active Substance: MEGESTROL ACETATE
  2. IMBRUVICA [Suspect]
     Active Substance: IBRUTINIB
     Indication: WALDENSTROM^S MACROGLOBULINAEMIA
     Route: 048
     Dates: start: 20160318, end: 20160418
  3. IMBRUVICA [Suspect]
     Active Substance: IBRUTINIB
     Indication: WALDENSTROM^S MACROGLOBULINAEMIA
     Route: 048
     Dates: start: 20151002
  4. COLACE [Concomitant]
     Active Substance: DOCUSATE SODIUM
  5. MSIR [Concomitant]
     Active Substance: MORPHINE SULFATE
  6. CHOLESTYRAMINE. [Concomitant]
     Active Substance: CHOLESTYRAMINE
  7. FERROUS SULFATE. [Concomitant]
     Active Substance: FERROUS SULFATE
  8. KLOR-CON [Concomitant]
     Active Substance: POTASSIUM CHLORIDE
  9. DILTIAZEM [Concomitant]
     Active Substance: DILTIAZEM
  10. CALCIUM 600 PLUS VITAMIN D [Concomitant]
     Active Substance: CALCIUM CARBONATE\VITAMIN D
  11. FISH OIL [Concomitant]
     Active Substance: FISH OIL
  12. IMBRUVICA [Suspect]
     Active Substance: IBRUTINIB
     Indication: WALDENSTROM^S MACROGLOBULINAEMIA
     Route: 048
     Dates: start: 20160120
  13. MELATONIN [Concomitant]
     Active Substance: MELATONIN

REACTIONS (11)
  - Dysphagia [Not Recovered/Not Resolved]
  - Hepatic function abnormal [Unknown]
  - Chronic obstructive pulmonary disease [Unknown]
  - Epistaxis [Unknown]
  - Pneumonia [Not Recovered/Not Resolved]
  - Cough [Unknown]
  - Pneumonia aspiration [Not Recovered/Not Resolved]
  - Product use issue [Not Recovered/Not Resolved]
  - Disease progression [Unknown]
  - Pleural effusion [Unknown]
  - Off label use [Not Recovered/Not Resolved]

NARRATIVE: CASE EVENT DATE: 201602
